FAERS Safety Report 16346907 (Version 1)
Quarter: 2019Q2

REPORT INFORMATION
  Report Type: Spontaneous
  Country: US (occurrence: US)
  Receive Date: 20190523
  Receipt Date: 20190523
  Transmission Date: 20190711
  Serious: No
  Sender: FDA-Public Use
  Company Number: US-MYLANLABS-2019M1043353

PATIENT
  Age: 69 Year
  Sex: Female
  Weight: 50 kg

DRUGS (2)
  1. ALLERTEC [Concomitant]
     Active Substance: CETIRIZINE HYDROCHLORIDE
  2. DYMISTA [Suspect]
     Active Substance: AZELASTINE HYDROCHLORIDE\FLUTICASONE PROPIONATE
     Indication: HYPERSENSITIVITY
     Dosage: UNK
     Route: 045
     Dates: start: 201904

REACTIONS (3)
  - Nasal congestion [Not Recovered/Not Resolved]
  - Product dose omission [Unknown]
  - Device malfunction [Not Recovered/Not Resolved]

NARRATIVE: CASE EVENT DATE: 201904
